FAERS Safety Report 7537158-1 (Version None)
Quarter: 2011Q2

REPORT INFORMATION
  Report Type: 
  Country: None (occurrence: None)
  Receive Date: 20110609
  Receipt Date: 20110607
  Transmission Date: 20111010
  Serious: Yes (Death, Hospitalization, Other)
  Sender: FDA-Public Use
  Company Number: PHHY2011CO48348

PATIENT
  Sex: Male

DRUGS (2)
  1. SANDOSTATIN LAR [Suspect]
     Route: 030
     Dates: start: 20060101, end: 20110401
  2. OXYCODONE HCL [Concomitant]

REACTIONS (13)
  - DISORIENTATION [None]
  - MOTOR DYSFUNCTION [None]
  - DECREASED APPETITE [None]
  - DYSPNOEA [None]
  - DRUG INEFFECTIVE [None]
  - LOSS OF CONSCIOUSNESS [None]
  - STARING [None]
  - AGGRESSION [None]
  - VOMITING [None]
  - HAIR GROWTH ABNORMAL [None]
  - ENCEPHALOPATHY [None]
  - PNEUMONIA [None]
  - NEOPLASM MALIGNANT [None]
